FAERS Safety Report 24575204 (Version 1)
Quarter: 2024Q4

REPORT INFORMATION
  Report Type: Spontaneous
  Country: US (occurrence: None)
  Receive Date: 20241101
  Receipt Date: 20241101
  Transmission Date: 20250114
  Serious: Yes (Hospitalization)
  Sender: Public
  Company Number: None

PATIENT
  Sex: Male

DRUGS (2)
  1. ADYNOVATE [Suspect]
     Active Substance: ANTIHEMOPHILIC FACTOR, HUMAN RECOMBINANT
     Indication: Factor VIII deficiency
     Dosage: FREQUENCY : AS NEEDED;?
     Route: 042
     Dates: start: 202002
  2. HEMUBRA SDV [Concomitant]

REACTIONS (3)
  - Rectal haemorrhage [None]
  - Haemarthrosis [None]
  - Haemorrhage [None]
